FAERS Safety Report 6724378-9 (Version None)
Quarter: 2010Q2

REPORT INFORMATION
  Report Type: 
  Country: None (occurrence: None)
  Receive Date: 20100513
  Receipt Date: 20100503
  Transmission Date: 20101027
  Serious: Yes (Other)
  Sender: FDA-Public Use
  Company Number: PHHY2010SI28440

PATIENT
  Age: 55 Year
  Sex: Female

DRUGS (4)
  1. FEMARA [Suspect]
     Indication: BREAST CANCER
     Dosage: 2.5 MG DAILY
     Route: 048
     Dates: start: 20090901
  2. INSULIN [Concomitant]
  3. TERTENSIF [Concomitant]
  4. EZETROL [Concomitant]

REACTIONS (4)
  - BLOOD CORTISOL INCREASED [None]
  - DEPRESSION [None]
  - INSOMNIA [None]
  - WEIGHT DECREASED [None]
